FAERS Safety Report 5855874-4 (Version None)
Quarter: 2008Q3

REPORT INFORMATION
  Report Type: 
  Country: None (occurrence: None)
  Receive Date: 20080821
  Receipt Date: 20080821
  Transmission Date: 20090109
  Serious: Yes (Life-Threatening, Hospitalization)
  Sender: FDA-Public Use
  Company Number: None

PATIENT
  Sex: Female
  Weight: 62.6 kg

DRUGS (2)
  1. LEVOFLOXACIN [Suspect]
     Indication: INFECTION
     Dosage: 750MG EVERY 48HOURS IV, 2 DOSES
     Route: 042
     Dates: start: 20080815, end: 20080818
  2. HALOPERIDOL [Suspect]
     Indication: AGITATION
     Dosage: 2 MG EVERY 3 H AS NEEDED IV BOLUS, 3 DOSES
     Route: 040
     Dates: start: 20080816, end: 20080818

REACTIONS (2)
  - ELECTROCARDIOGRAM QT PROLONGED [None]
  - TORSADE DE POINTES [None]
